FAERS Safety Report 14193283 (Version 3)
Quarter: 2018Q1

REPORT INFORMATION
  Report Type: Report from Study
  Country: DE (occurrence: DE)
  Receive Date: 20171116
  Receipt Date: 20180125
  Transmission Date: 20180508
  Serious: Yes (Death, Hospitalization)
  Sender: FDA-Public Use
  Company Number: DE-ROCHE-2025622

PATIENT
  Age: 72 Year
  Sex: Female

DRUGS (10)
  1. PANTOPRAZOL [Concomitant]
     Active Substance: PANTOPRAZOLE SODIUM
     Route: 048
  2. XELODA [Suspect]
     Active Substance: CAPECITABINE
     Indication: COLORECTAL CANCER
     Route: 065
  3. LOPERAMID [Concomitant]
     Active Substance: LOPERAMIDE
     Indication: DIARRHOEA
     Dosage: IF NEEDED
     Route: 048
  4. BEVACIZUMAB. [Suspect]
     Active Substance: BEVACIZUMAB
     Indication: COLORECTAL CANCER
     Dosage: DAY 1 OF CHEMOTHERAPY
     Route: 042
     Dates: start: 20080616, end: 20091101
  5. MORPHINE [Concomitant]
     Active Substance: MORPHINE
     Indication: PAIN
     Dosage: IF NEEDED
     Route: 048
  6. ASPIRIN. [Concomitant]
     Active Substance: ASPIRIN
     Route: 048
  7. METAMIZOL [Concomitant]
     Active Substance: METAMIZOLE SODIUM
     Indication: PAIN
     Dosage: IF NEEDED?30 TO 40 GTT
     Route: 048
  8. MUCOFALK [Concomitant]
     Indication: CONSTIPATION
     Dosage: IF NEEDED
     Route: 048
  9. FUROSEMID [Concomitant]
     Active Substance: FUROSEMIDE
     Route: 048
  10. MCP [Concomitant]
     Active Substance: METOCLOPRAMIDE HYDROCHLORIDE
     Indication: NAUSEA
     Dosage: UNIT DOSE: 20 (DRP)
     Route: 048

REACTIONS (6)
  - Hypovolaemic shock [Unknown]
  - Cystitis [Unknown]
  - Haematuria [Unknown]
  - Haemorrhagic anaemia [Unknown]
  - Malignant neoplasm progression [Fatal]
  - Hydronephrosis [Unknown]

NARRATIVE: CASE EVENT DATE: 20091021
